FAERS Safety Report 22246938 (Version 11)
Quarter: 2023Q4

REPORT INFORMATION
  Report Type: Report from Study
  Country: CN (occurrence: CN)
  Receive Date: 20230424
  Receipt Date: 20231219
  Transmission Date: 20240110
  Serious: Yes (Other)
  Sender: FDA-Public Use
  Company Number: CN-FOSUNKITE-FOSUNKITE-20230343

PATIENT
  Age: 63 Year
  Sex: Male

DRUGS (6)
  1. AXICABTAGENE CILOLEUCEL [Suspect]
     Active Substance: AXICABTAGENE CILOLEUCEL
     Indication: Non-Hodgkin^s lymphoma
     Dosage: 1.2*10^8 CELLS (NUMBER OF CAR-T CELLS)
     Route: 042
     Dates: start: 20230316, end: 20230316
  2. CYCLOPHOSPHAMIDE [Suspect]
     Active Substance: CYCLOPHOSPHAMIDE
     Indication: Lymphodepletion
     Dosage: 47MG) VIA IVGTT.
     Route: 041
     Dates: start: 20230312, end: 20230314
  3. FLUDARABINE PHOSPHATE [Suspect]
     Active Substance: FLUDARABINE PHOSPHATE
     Indication: Lymphodepletion
     Dosage: 47 MG
     Route: 041
     Dates: start: 20230312, end: 20230314
  4. GAZYVA [Concomitant]
     Active Substance: OBINUTUZUMAB
     Dosage: 1000 MG C1, (IVGTT))
     Route: 042
     Dates: start: 20230214
  5. TUCIDINOSTAT [Concomitant]
     Active Substance: TUCIDINOSTAT
     Dosage: 30 MG C1
     Route: 048
     Dates: start: 20230214
  6. IBRUTINIB [Concomitant]
     Active Substance: IBRUTINIB
     Dosage: 560 MG C1
     Route: 048
     Dates: start: 20230215

REACTIONS (17)
  - Peritonitis [Recovered/Resolved]
  - Pneumonia [Recovered/Resolved]
  - Cytokine release syndrome [Unknown]
  - White blood cell count decreased [Recovered/Resolved]
  - Lymphocyte count decreased [Recovered/Resolved]
  - Procalcitonin increased [Recovered/Resolved]
  - Hypoproteinaemia [Recovered/Resolved]
  - Blood triglycerides increased [Not Recovered/Not Resolved]
  - Hypoglobulinaemia [Recovered/Resolved]
  - Cytokine increased [Recovered/Resolved]
  - Serum ferritin increased [Not Recovered/Not Resolved]
  - Abdominal distension [Recovered/Resolved]
  - Natural killer cell count decreased [Recovered/Resolved]
  - Platelet count decreased [Recovered/Resolved]
  - Neutrophil count decreased [Recovered/Resolved]
  - Anaemia [Recovered/Resolved]
  - Blood fibrinogen decreased [Recovered/Resolved]

NARRATIVE: CASE EVENT DATE: 20230318
